FAERS Safety Report 21130752 (Version 2)
Quarter: 2022Q3

REPORT INFORMATION
  Report Type: Spontaneous
  Country: US (occurrence: None)
  Receive Date: 20220726
  Receipt Date: 20220915
  Transmission Date: 20221027
  Serious: Yes (Other)
  Sender: FDA-Public Use
  Company Number: US-Merck Healthcare KGaA-9338789

PATIENT
  Sex: Female

DRUGS (1)
  1. REBIF [Suspect]
     Active Substance: INTERFERON BETA-1A
     Indication: Product used for unknown indication

REACTIONS (1)
  - Lipodystrophy acquired [Unknown]
